FAERS Safety Report 17371973 (Version 1)
Quarter: 2020Q1

REPORT INFORMATION
  Report Type: Spontaneous
  Country: FR (occurrence: FR)
  Receive Date: 20200205
  Receipt Date: 20200205
  Transmission Date: 20200409
  Serious: Yes (Hospitalization)
  Sender: FDA-Public Use
  Company Number: FR-ANIPHARMA-2020-FR-000039

PATIENT
  Age: 41 Year
  Sex: Male

DRUGS (12)
  1. CELLCEPT [Concomitant]
     Active Substance: MYCOPHENOLATE MOFETIL\MYCOPHENOLATE MOFETIL HYDROCHLORIDE
     Dosage: 2500 MG QD
     Route: 048
     Dates: start: 2016
  2. PHOSPHONEUROS [Concomitant]
     Active Substance: CALCIUM PHOSPHATE, DIBASIC, ANHYDROUS\MAGNESIUM GLYCEROPHOSPHATE\PHOSPHORIC ACID\SODIUM PHOSPHATE, DIBASIC
     Dosage: UNKNOWN
     Route: 065
     Dates: start: 2016
  3. LIPANTHYL [Suspect]
     Active Substance: FENOFIBRATE
     Dosage: 1 DF DAILY
     Route: 048
     Dates: start: 201904, end: 20200102
  4. SODIUM BICARBONATE. [Concomitant]
     Active Substance: SODIUM BICARBONATE
     Dosage: UNKNOWN
     Route: 048
     Dates: start: 2016
  5. CELECTOL [Concomitant]
     Active Substance: CELIPROLOL HYDROCHLORIDE
     Dosage: UNKNOWN
     Route: 048
     Dates: start: 2016
  6. TRULICITY [Suspect]
     Active Substance: DULAGLUTIDE
     Dosage: UNKNONW
     Route: 058
     Dates: start: 201903, end: 20200102
  7. AMLODIPINE [Concomitant]
     Active Substance: AMLODIPINE BESYLATE
     Dosage: 5 MG QD
     Route: 048
     Dates: start: 2016, end: 20200102
  8. ADVAGRAF [Suspect]
     Active Substance: TACROLIMUS
     Dosage: 6 MG QD/ 2 MG QD
     Route: 048
     Dates: start: 20191205
  9. DEDROGYL [Concomitant]
     Active Substance: CALCIFEDIOL
     Dosage: UNKNOWN
     Route: 048
     Dates: start: 2016
  10. CORTANCYL [Concomitant]
     Active Substance: PREDNISONE
     Dosage: 5 MG QD
     Route: 048
     Dates: start: 2016
  11. INEXIUM [Concomitant]
     Active Substance: ESOMEPRAZOLE
     Dosage: UNKNOWN
     Route: 048
     Dates: start: 2016
  12. CANDESARTAN CILEXETIL. [Suspect]
     Active Substance: CANDESARTAN CILEXETIL
     Indication: HYPERTENSION
     Dosage: 8 MG QD
     Route: 048
     Dates: start: 201903, end: 20200102

REACTIONS (1)
  - Pancreatitis acute [Recovered/Resolved]

NARRATIVE: CASE EVENT DATE: 20200103
